FAERS Safety Report 11102014 (Version 3)
Quarter: 2016Q2

REPORT INFORMATION
  Report Type: Report from Study
  Country: BR (occurrence: BR)
  Receive Date: 20150511
  Receipt Date: 20160506
  Transmission Date: 20160815
  Serious: Yes (Other)
  Sender: FDA-Public Use
  Company Number: BR-ROCHE-1574247

PATIENT
  Age: 78 Year
  Sex: Female
  Weight: 73 kg

DRUGS (8)
  1. PARACETAMOL [Concomitant]
     Active Substance: ACETAMINOPHEN
     Indication: PAIN
  2. ACTEMRA [Suspect]
     Active Substance: TOCILIZUMAB
     Indication: RHEUMATOID ARTHRITIS
     Route: 042
     Dates: start: 20140514
  3. PREDSIM [Concomitant]
     Active Substance: PREDNISOLONE
     Route: 065
  4. VELIJA [Concomitant]
     Active Substance: DULOXETINE HYDROCHLORIDE
     Indication: PAIN
     Route: 065
  5. DAFLON [Concomitant]
     Active Substance: DIOSMIN\HESPERIDIN
     Route: 065
  6. ACTEMRA [Suspect]
     Active Substance: TOCILIZUMAB
     Route: 042
     Dates: start: 20151111
  7. AMITRIPTYLINE [Concomitant]
     Active Substance: AMITRIPTYLINE
     Dosage: PATIENT CUTS THE TABLET AND TAKE IT AFTER DINNER, BECAUSE IT MAKES HER CALM AND SHE ENJOYS TAKING IT
     Route: 065
  8. ANCORON [Concomitant]
     Active Substance: AMIODARONE HYDROCHLORIDE
     Indication: CARDIAC DISORDER

REACTIONS (8)
  - Spinal fracture [Unknown]
  - Limb injury [Unknown]
  - Back injury [Not Recovered/Not Resolved]
  - Impaired healing [Recovering/Resolving]
  - Fall [Unknown]
  - Arrhythmia [Unknown]
  - Dengue fever [Recovered/Resolved]
  - Wound [Unknown]

NARRATIVE: CASE EVENT DATE: 201603
